FAERS Safety Report 8914778 (Version 1)
Quarter: 2012Q4

REPORT INFORMATION
  Report Type: 
  Country: US (occurrence: US)
  Receive Date: 20121119
  Receipt Date: 20121119
  Transmission Date: 20130627
  Serious: Yes (Other)
  Sender: FDA-Public Use
  Company Number: US-ASTRAZENECA-2012SE85672

PATIENT
  Age: 48 Year
  Sex: Female
  Weight: 64.4 kg

DRUGS (12)
  1. PRILOSEC [Suspect]
     Indication: GASTROOESOPHAGEAL REFLUX DISEASE
     Route: 048
     Dates: start: 2002
  2. SEROQUEL [Suspect]
     Route: 048
  3. RISPERIDOL [Concomitant]
  4. TRAMADOL [Concomitant]
  5. B12 [Concomitant]
  6. VITAMIN C [Concomitant]
  7. TOPAMAX [Concomitant]
  8. MELOXICAM [Concomitant]
  9. NEUROTIN [Concomitant]
  10. HYDROXINE [Concomitant]
  11. CLONIDINE [Concomitant]
  12. LITHIUM [Concomitant]

REACTIONS (5)
  - Multiple sclerosis [Unknown]
  - Bipolar disorder [Unknown]
  - Oesophagitis [Unknown]
  - Vomiting [Unknown]
  - Drug ineffective [Unknown]
